FAERS Safety Report 6578522-7 (Version None)
Quarter: 2010Q1

REPORT INFORMATION
  Report Type: 
  Country: None (occurrence: None)
  Receive Date: 20100211
  Receipt Date: 20100211
  Transmission Date: 20100710
  Serious: Yes (Hospitalization)
  Sender: FDA-Public Use
  Company Number: PHHO2006US04531

PATIENT
  Sex: Female
  Weight: 122.5 kg

DRUGS (13)
  1. STARLIX [Suspect]
     Indication: GLUCOSE TOLERANCE IMPAIRED
     Dosage: LEVEL 1
     Route: 048
     Dates: start: 20020611
  2. STARLIX [Suspect]
     Dosage: 60 MG AC, LEVEL 2
     Route: 048
     Dates: end: 20060301
  3. STARLIX [Suspect]
     Dosage: 60 MG, LEVEL 2
     Route: 048
     Dates: start: 20060313
  4. PLACEBO PLACEBO [Suspect]
     Indication: CARDIOVASCULAR DISORDER
     Dosage: LEVEL 1
     Dates: start: 20020611
  5. PLACEBO PLACEBO [Suspect]
     Dosage: LEVEL 2
     Dates: end: 20060301
  6. ATENOLOL [Concomitant]
     Indication: HYPERTENSION
  7. ASPIRIN [Concomitant]
     Indication: PROPHYLAXIS
  8. VASOTEC [Concomitant]
     Indication: HYPERTENSION
  9. LISINOPRIL [Concomitant]
  10. MACROBID [Concomitant]
  11. TOPROL-XL [Concomitant]
  12. TRICOR [Concomitant]
  13. NORTRIPTYLINE HCL [Concomitant]

REACTIONS (12)
  - ATRIAL FLUTTER [None]
  - CARDIAC ABLATION [None]
  - CARDIAC MURMUR [None]
  - DISEASE PROGRESSION [None]
  - DIZZINESS [None]
  - DYSPNOEA [None]
  - FEELING ABNORMAL [None]
  - FIBRIN D DIMER INCREASED [None]
  - HEART RATE INCREASED [None]
  - INJECTION SITE ERYTHEMA [None]
  - INJECTION SITE OEDEMA [None]
  - PALPITATIONS [None]
